FAERS Safety Report 12777867 (Version 1)
Quarter: 2016Q3

REPORT INFORMATION
  Report Type: Spontaneous
  Country: US (occurrence: US)
  Receive Date: 20160924
  Receipt Date: 20160924
  Transmission Date: 20161109
  Serious: No
  Sender: FDA-Public Use
  Company Number: US-JAZZ-2016-US-010730

PATIENT
  Sex: Female

DRUGS (26)
  1. DEXILANT [Concomitant]
     Active Substance: DEXLANSOPRAZOLE
  2. PLAQUENIL [Concomitant]
     Active Substance: HYDROXYCHLOROQUINE SULFATE
  3. HYLATOPICPLUS [Concomitant]
  4. XYREM [Suspect]
     Active Substance: SODIUM OXYBATE
     Dosage: DOSE ADJUSTMENTS
     Route: 048
     Dates: start: 201501, end: 201505
  5. GABAPENTIN. [Concomitant]
     Active Substance: GABAPENTIN
  6. SUMATRIPTAN. [Concomitant]
     Active Substance: SUMATRIPTAN
  7. DICLOFENAC POTASSIUM. [Concomitant]
     Active Substance: DICLOFENAC POTASSIUM
  8. XYREM [Suspect]
     Active Substance: SODIUM OXYBATE
     Dosage: 4.5 G, BID
     Route: 048
     Dates: start: 201505, end: 2016
  9. METADATE CD [Concomitant]
     Active Substance: METHYLPHENIDATE HYDROCHLORIDE
  10. COMPAZINE [Concomitant]
     Active Substance: PROCHLORPERAZINE MALEATE
  11. NEUPRO [Concomitant]
     Active Substance: ROTIGOTINE
  12. ADDERALL [Concomitant]
     Active Substance: AMPHETAMINE ASPARTATE\AMPHETAMINE SULFATE\DEXTROAMPHETAMINE SACCHARATE\DEXTROAMPHETAMINE SULFATE
  13. CATAFLAM [Concomitant]
     Active Substance: DICLOFENAC POTASSIUM
  14. XYREM [Suspect]
     Active Substance: SODIUM OXYBATE
     Indication: NARCOLEPSY
     Dosage: 2.25 G, BID
     Route: 048
     Dates: start: 201501, end: 201501
  15. OLUX [Concomitant]
     Active Substance: CLOBETASOL PROPIONATE
  16. FISH OIL [Concomitant]
     Active Substance: FISH OIL
  17. ADVIL COLD AND SINUS [Concomitant]
     Active Substance: IBUPROFEN\PSEUDOEPHEDRINE HYDROCHLORIDE
  18. FENOFIBRATE. [Concomitant]
     Active Substance: FENOFIBRATE
  19. TOPAMAX [Concomitant]
     Active Substance: TOPIRAMATE
  20. HYDROCHLOROTHIAZIDE. [Concomitant]
     Active Substance: HYDROCHLOROTHIAZIDE
  21. MOTRIN IB [Concomitant]
     Active Substance: IBUPROFEN
  22. ROBITUSSIN (GUAIFENESIN) [Concomitant]
     Active Substance: GUAIFENESIN
  23. PROVIGIL [Concomitant]
     Active Substance: MODAFINIL
  24. LOSARTAN POTASSIUM. [Concomitant]
     Active Substance: LOSARTAN POTASSIUM
  25. TRAMADOL HCL [Concomitant]
     Active Substance: TRAMADOL HYDROCHLORIDE
  26. SYMBICORT [Concomitant]
     Active Substance: BUDESONIDE\FORMOTEROL FUMARATE DIHYDRATE

REACTIONS (3)
  - Malaise [Unknown]
  - Nasopharyngitis [Unknown]
  - Unevaluable event [Unknown]
